FAERS Safety Report 8131244-3 (Version None)
Quarter: 2012Q1

REPORT INFORMATION
  Report Type: 
  Country: None (occurrence: None)
  Receive Date: 20120207
  Receipt Date: 20120130
  Transmission Date: 20120608
  Serious: Yes (Hospitalization, Other)
  Sender: FDA-Public Use
  Company Number: TPA2011A06884

PATIENT
  Age: 68 Year
  Sex: Male
  Weight: 86.1834 kg

DRUGS (13)
  1. SYMBICORT [Concomitant]
  2. ACTOS [Suspect]
     Indication: TYPE 2 DIABETES MELLITUS
     Dosage: 45 MG-1/2 TABLET, 1 IN 1 D
     Dates: start: 20090731, end: 20110822
  3. INSULIN PUMP (INSULIN) [Concomitant]
  4. LASIX [Concomitant]
  5. LISINOPRIL [Concomitant]
  6. COREG [Concomitant]
  7. NOVOLOG [Concomitant]
  8. KOMBIGLYZE XR(ALL OTHER THERAPEUTIC PRODUCTS) [Concomitant]
  9. ANDROGEL [Concomitant]
  10. PLAVIX [Concomitant]
  11. FISH OIL (FISH OIL) [Concomitant]
  12. VITAMIN D [Concomitant]
  13. CARVEDILOL [Concomitant]

REACTIONS (2)
  - RENAL CYST [None]
  - BLADDER TRANSITIONAL CELL CARCINOMA [None]
